FAERS Safety Report 9519266 (Version 4)
Quarter: 2013Q4

REPORT INFORMATION
  Report Type: Report from Study
  Country: LV (occurrence: LV)
  Receive Date: 20130912
  Receipt Date: 20131114
  Transmission Date: 20140711
  Serious: Yes (Death, Hospitalization, Other)
  Sender: FDA-Public Use
  Company Number: LV-GILEAD-2013-0083173

PATIENT
  Age: 34 Year
  Sex: Female
  Weight: 53 kg

DRUGS (10)
  1. LAMICTAL [Concomitant]
     Dosage: 50 MG, BID
  2. TMP-SMX [Concomitant]
     Dosage: 480 MG, QD
  3. FLUCONAZOL [Concomitant]
     Dosage: 150 MG, Q1WK
  4. TENOFOVIR DISOPROXIL FUMARATE [Suspect]
     Indication: HIV INFECTION
     Dosage: 245 MG, QD
     Route: 048
     Dates: start: 20110902, end: 20130823
  5. CITALOPRAM [Interacting]
     Indication: DEPRESSION
     Dosage: 20 MG, QD
  6. XANAX [Interacting]
     Indication: DEPRESSION
     Dosage: 1 MG, QD
  7. ATAZANAVIR [Concomitant]
     Indication: HIV INFECTION
     Dosage: 300 MG, QD
     Dates: start: 20110902
  8. RITONAVIR [Concomitant]
     Indication: HIV INFECTION
     Dosage: 100 MG, QD
  9. DDI [Concomitant]
     Indication: HIV INFECTION
     Dosage: 400 MG, QD
     Dates: start: 20110902
  10. AZT [Concomitant]
     Indication: HIV INFECTION

REACTIONS (8)
  - Multi-organ failure [Fatal]
  - Drug interaction [Fatal]
  - Renal failure acute [Fatal]
  - HIV infection WHO clinical stage III [Fatal]
  - Disseminated intravascular coagulation [Fatal]
  - Pneumonia fungal [Fatal]
  - Pancreatitis acute [Fatal]
  - Hepatic steatosis [Fatal]
